FAERS Safety Report 16098605 (Version 1)
Quarter: 2019Q1

REPORT INFORMATION
  Report Type: Report from Study
  Country: BR (occurrence: BR)
  Receive Date: 20190321
  Receipt Date: 20190321
  Transmission Date: 20190418
  Serious: Yes (Other)
  Sender: FDA-Public Use
  Company Number: BR-JNJFOC-20190319280

PATIENT
  Age: 44 Year
  Sex: Female

DRUGS (1)
  1. STELARA [Suspect]
     Active Substance: USTEKINUMAB
     Indication: PSORIASIS
     Dosage: 45 MG/0.5 ML
     Route: 058
     Dates: start: 2018

REACTIONS (2)
  - Brain neoplasm [Unknown]
  - Psoriasis [Unknown]

NARRATIVE: CASE EVENT DATE: 201902
